FAERS Safety Report 9153110 (Version 2)
Quarter: 2013Q3

REPORT INFORMATION
  Report Type: Spontaneous
  Country: ES (occurrence: None)
  Receive Date: 20130204
  Receipt Date: 20130705
  Transmission Date: 20140515
  Serious: Yes (Hospitalization)
  Sender: FDA-Public Use
  Company Number: ES-025421

PATIENT
  Age: 73 Year
  Sex: Male
  Weight: 83.5 kg

DRUGS (3)
  1. CHLORAMBUCIL [Suspect]
     Indication: CHRONIC LYMPHOCYTIC LEUKAEMIA
     Dosage: 42 MG EVERY 15 DAYS (42 MG, 1 IN 15 DAYS), ORAL
     Route: 048
     Dates: start: 20110613
  2. NIFEDIPINE (NIFEDIPINE) [Concomitant]
  3. VALSARTAN (VALSARTAN) [Concomitant]

REACTIONS (1)
  - Autoimmune haemolytic anaemia [None]
